FAERS Safety Report 7709714-9 (Version None)
Quarter: 2011Q3

REPORT INFORMATION
  Report Type: 
  Country: None (occurrence: None)
  Receive Date: 20110825
  Receipt Date: 20110818
  Transmission Date: 20111222
  Serious: Yes (Other)
  Sender: FDA-Public Use
  Company Number: BR-GLAXOSMITHKLINE-B0741765A

PATIENT
  Sex: Female
  Weight: 92 kg

DRUGS (8)
  1. HYGROTON [Concomitant]
     Indication: DIURETIC THERAPY
  2. NORFLOXACIN [Suspect]
     Indication: PRODUCT USED FOR UNKNOWN INDICATION
     Route: 065
  3. LEVOTHYROXINE SODIUM [Concomitant]
     Indication: THYROID HORMONE REPLACEMENT THERAPY
     Dosage: 100MCG PER DAY
     Route: 048
  4. DIPYRONE TAB [Suspect]
     Indication: PRODUCT USED FOR UNKNOWN INDICATION
     Route: 065
  5. ISOFLAVONE [Concomitant]
     Indication: MENOPAUSE
     Dosage: 1TAB PER DAY
     Route: 048
  6. KETOROLAC TROMETHAMINE [Concomitant]
     Dosage: 10DROP PER DAY
     Route: 048
  7. AMITRIPTYLINE HCL [Concomitant]
     Indication: DEPRESSION
     Dosage: 25MG PER DAY
     Route: 048
     Dates: start: 20110808
  8. PROPAFENONE HCL [Suspect]
     Indication: ARRHYTHMIA
     Dosage: .5TAB TWICE PER DAY
     Route: 048

REACTIONS (9)
  - BACK PAIN [None]
  - FALL [None]
  - ARTERIAL OCCLUSIVE DISEASE [None]
  - CALCINOSIS [None]
  - NERVE COMPRESSION [None]
  - ERYTHEMA [None]
  - WRIST FRACTURE [None]
  - OSTEOPENIA [None]
  - BLOOD PRESSURE FLUCTUATION [None]
